FAERS Safety Report 13133376 (Version 1)
Quarter: 2017Q1

REPORT INFORMATION
  Report Type: Spontaneous
  Country: US (occurrence: US)
  Receive Date: 20170119
  Receipt Date: 20170119
  Transmission Date: 20170428
  Serious: Yes (Life-Threatening, Hospitalization)
  Sender: FDA-Public Use
  Company Number: None

PATIENT
  Age: 53 Year
  Sex: Male
  Weight: 63.8 kg

DRUGS (2)
  1. AMANTADINE [Suspect]
     Active Substance: AMANTADINE
     Indication: DISTURBANCE IN ATTENTION
     Dates: start: 20160506, end: 20160714
  2. METHYLPHENIDATE. [Suspect]
     Active Substance: METHYLPHENIDATE
     Indication: DEPRESSED LEVEL OF CONSCIOUSNESS
     Dates: start: 20160324, end: 20160714

REACTIONS (4)
  - Muscle twitching [None]
  - Respiration abnormal [None]
  - Hyperhidrosis [None]
  - Excessive eye blinking [None]

NARRATIVE: CASE EVENT DATE: 20160714
